FAERS Safety Report 12448254 (Version 2)
Quarter: 2016Q2

REPORT INFORMATION
  Report Type: Report from Study
  Country: US (occurrence: US)
  Receive Date: 20160608
  Receipt Date: 20160621
  Transmission Date: 20160815
  Serious: Yes (Other)
  Sender: FDA-Public Use
  Company Number: US-BAYER-2016-092442

PATIENT
  Age: 24 Year
  Sex: Male

DRUGS (1)
  1. NEXAVAR [Suspect]
     Active Substance: SORAFENIB
     Indication: HEPATOCELLULAR CARCINOMA
     Dosage: 200 MG, BID
     Route: 048
     Dates: start: 20160504, end: 20160606

REACTIONS (8)
  - Oliguria [None]
  - Fatigue [None]
  - Hepatic lesion [None]
  - Cough [None]
  - Diarrhoea [None]
  - Rash [None]
  - Hypotension [None]
  - Choking [None]

NARRATIVE: CASE EVENT DATE: 2016
